FAERS Safety Report 20317396 (Version 1)
Quarter: 2022Q1

REPORT INFORMATION
  Report Type: Other
  Country: JP (occurrence: None)
  Receive Date: 20220110
  Receipt Date: 20220110
  Transmission Date: 20220423
  Serious: Yes (Other)
  Sender: FDA-Public Use
  Company Number: JP-ROCHE-2997438

PATIENT

DRUGS (1)
  1. RITUXIMAB [Suspect]
     Active Substance: RITUXIMAB
     Indication: Castleman^s disease
     Route: 042

REACTIONS (1)
  - Gastric cancer [Unknown]
